FAERS Safety Report 4364615-1 (Version None)
Quarter: 2004Q2

REPORT INFORMATION
  Report Type: 
  Country: None (occurrence: None)
  Receive Date: 20040521
  Receipt Date: 20040510
  Transmission Date: 20050107
  Serious: Yes (Life-Threatening, Hospitalization, Disabling)
  Sender: FDA-Public Use
  Company Number: 2003-BP-09498BP

PATIENT
  Age: 46 Year
  Sex: Female

DRUGS (1)
  1. VIRAMUNE [Suspect]
     Indication: HIV INFECTION
     Dosage: PO
     Route: 048
     Dates: start: 20000301, end: 20010501

REACTIONS (7)
  - DRY MOUTH [None]
  - FIBROMYALGIA [None]
  - KERATOCONJUNCTIVITIS SICCA [None]
  - MUSCULAR WEAKNESS [None]
  - MYOSITIS [None]
  - NEUROPATHY [None]
  - RASH PRURITIC [None]
